FAERS Safety Report 5458565-7 (Version None)
Quarter: 2007Q3

REPORT INFORMATION
  Report Type: 
  Country: None (occurrence: None)
  Receive Date: 20070919
  Receipt Date: 20070410
  Transmission Date: 20080115
  Serious: No
  Sender: FDA-Public Use
  Company Number: US-ASTRAZENECA-2007UW07039

PATIENT
  Sex: Male

DRUGS (6)
  1. SEROQUEL [Suspect]
     Indication: MAJOR DEPRESSION
     Route: 048
     Dates: start: 20060401, end: 20070301
  2. SEROQUEL [Suspect]
     Route: 048
     Dates: start: 20070301
  3. EFFEXOR [Concomitant]
  4. CELEBREX [Concomitant]
  5. ZETIA [Concomitant]
  6. RELPAX [Concomitant]

REACTIONS (3)
  - DEPRESSION [None]
  - EATING DISORDER [None]
  - INSOMNIA [None]
